FAERS Safety Report 21746954 (Version 1)
Quarter: 2022Q4

REPORT INFORMATION
  Report Type: Spontaneous
  Country: US (occurrence: None)
  Receive Date: 20221216
  Receipt Date: 20221216
  Transmission Date: 20230113
  Serious: No
  Sender: FDA-Public Use
  Company Number: None

PATIENT
  Age: 47 Year
  Sex: Male
  Weight: 101.25 kg

DRUGS (13)
  1. CANNABINOL\HERBALS [Suspect]
     Active Substance: CANNABINOL\HERBALS
     Indication: Back pain
     Dates: start: 20221215, end: 20221215
  2. MYRBETRIQ [Concomitant]
     Active Substance: MIRABEGRON
  3. PROVIGIL [Concomitant]
     Active Substance: MODAFINIL
  4. DILTIAZEM [Concomitant]
     Active Substance: DILTIAZEM
  5. VENLAFAXINE [Concomitant]
     Active Substance: VENLAFAXINE HYDROCHLORIDE
  6. BUSPIRONE [Concomitant]
     Active Substance: BUSPIRONE HYDROCHLORIDE
  7. PROMETHAZINE [Concomitant]
     Active Substance: PROMETHAZINE HYDROCHLORIDE
  8. HYDROXYZINE [Concomitant]
     Active Substance: HYDROXYZINE HYDROCHLORIDE
  9. ATORVASTATIN [Concomitant]
     Active Substance: ATORVASTATIN
  10. VITAMINS [Concomitant]
     Active Substance: VITAMINS
  11. CALCIUM\VITAMIN D [Concomitant]
     Active Substance: CALCIUM\VITAMIN D
  12. CHONDROITIN SULFATE (BOVINE)\GLUCOSAMINE SULFATE [Concomitant]
     Active Substance: CHONDROITIN SULFATE (BOVINE)\GLUCOSAMINE SULFATE
  13. FISH OIL [Concomitant]
     Active Substance: FISH OIL

REACTIONS (3)
  - Palpitations [None]
  - Blood pressure increased [None]
  - Suspected counterfeit product [None]

NARRATIVE: CASE EVENT DATE: 20221215
